FAERS Safety Report 7484750-9 (Version None)
Quarter: 2011Q2

REPORT INFORMATION
  Report Type: 
  Country: None (occurrence: None)
  Receive Date: 20110517
  Receipt Date: 20081105
  Transmission Date: 20111010
  Serious: Yes (Other)
  Sender: FDA-Public Use
  Company Number: US-BAYER-2011-008280

PATIENT
  Age: 54 Year
  Sex: Female
  Weight: 97.506 kg

DRUGS (8)
  1. ACE INHIBITOR NOS [Concomitant]
     Indication: HYPERTENSION
     Dosage: UNK
     Route: 048
     Dates: start: 19960101, end: 19960101
  2. FUROSEMIDE [Concomitant]
     Dosage: UNK
     Route: 048
     Dates: start: 19940101, end: 19960101
  3. HYDROCHLOROTHIAZIDE [Concomitant]
     Dosage: UNK
     Route: 048
     Dates: start: 19970101, end: 19970101
  4. MOTRIN [Concomitant]
     Indication: PAIN
     Dosage: UNK
     Route: 048
     Dates: start: 19960101, end: 19960101
  5. TRASYLOL [Suspect]
     Indication: CORONARY ARTERY BYPASS
     Dosage: UNK
     Dates: start: 19970205
  6. IBUPROFEN [Concomitant]
     Indication: PAIN
     Dosage: UNK
     Route: 048
     Dates: start: 19940101, end: 19940101
  7. ANALGESICS [Concomitant]
     Indication: PAIN
     Dosage: UNK
     Route: 048
     Dates: start: 19960101, end: 19960101
  8. NUPRIN [Concomitant]
     Indication: PAIN
     Dosage: UNK
     Route: 048
     Dates: start: 19960101, end: 19960101

REACTIONS (8)
  - FEAR [None]
  - RENAL FAILURE [None]
  - ANXIETY [None]
  - EMOTIONAL DISTRESS [None]
  - INJURY [None]
  - PAIN [None]
  - STRESS [None]
  - UNEVALUABLE EVENT [None]
